FAERS Safety Report 14616456 (Version 1)
Quarter: 2018Q1

REPORT INFORMATION
  Report Type: Spontaneous
  Country: US (occurrence: US)
  Receive Date: 20180309
  Receipt Date: 20180309
  Transmission Date: 20180509
  Serious: No
  Sender: FDA-Public Use
  Company Number: US-PFIZER INC-2018095488

PATIENT
  Age: 70 Year
  Sex: Female

DRUGS (1)
  1. TORISEL [Suspect]
     Active Substance: TEMSIROLIMUS
     Indication: ENDOMETRIAL CANCER METASTATIC
     Dosage: UNK

REACTIONS (2)
  - Neoplasm progression [Unknown]
  - Protein total increased [Unknown]
